FAERS Safety Report 23823426 (Version 1)
Quarter: 2024Q2

REPORT INFORMATION
  Report Type: Spontaneous
  Country: US (occurrence: US)
  Receive Date: 20240507
  Receipt Date: 20240507
  Transmission Date: 20240716
  Serious: No
  Sender: FDA-Public Use
  Company Number: US-BEH-2024171873

PATIENT
  Age: 42 Year
  Sex: Female

DRUGS (4)
  1. HIZENTRA [Suspect]
     Active Substance: HUMAN IMMUNOGLOBULIN G
     Indication: Immunodeficiency common variable
     Dosage: 10 G, QW (EVERY 7 DAYS)
     Route: 058
     Dates: start: 20220405
  2. DIPHENHYDRAMINE [Concomitant]
     Active Substance: DIPHENHYDRAMINE
  3. METHOTREXATE [Concomitant]
     Active Substance: METHOTREXATE
  4. RECLAST [Suspect]
     Active Substance: ZOLEDRONIC ACID
     Route: 042

REACTIONS (2)
  - Condition aggravated [Unknown]
  - General physical health deterioration [Unknown]
